FAERS Safety Report 15606299 (Version 1)
Quarter: 2018Q4

REPORT INFORMATION
  Report Type: Spontaneous
  Country: US (occurrence: US)
  Receive Date: 20181106
  Receipt Date: 20181106
  Transmission Date: 20190205
  Serious: Yes (Hospitalization)
  Sender: FDA-Public Use
  Company Number: None

PATIENT
  Age: 73 Year
  Sex: Male
  Weight: 105 kg

DRUGS (4)
  1. LISINOPRIL. [Suspect]
     Active Substance: LISINOPRIL
     Indication: HYPOKALAEMIA
     Route: 048
     Dates: start: 20180329, end: 20180823
  2. LISINOPRIL. [Suspect]
     Active Substance: LISINOPRIL
     Indication: HYPERTENSION
     Route: 048
     Dates: start: 20180329, end: 20180823
  3. LISINOPRIL. [Suspect]
     Active Substance: LISINOPRIL
     Indication: HYPERTENSION
     Route: 048
     Dates: start: 20080108, end: 20180823
  4. LISINOPRIL. [Suspect]
     Active Substance: LISINOPRIL
     Indication: HYPOKALAEMIA

REACTIONS (1)
  - Hyperkalaemia [None]

NARRATIVE: CASE EVENT DATE: 20180822
